FAERS Safety Report 5243010-7 (Version None)
Quarter: 2007Q1

REPORT INFORMATION
  Report Type: 
  Country: None (occurrence: None)
  Receive Date: 20070215
  Receipt Date: 20070207
  Transmission Date: 20070707
  Serious: Yes (Hospitalization)
  Sender: FDA-Public Use
  Company Number: 236296

PATIENT
  Age: 66 Year
  Sex: Male

DRUGS (11)
  1. XOLAIR [Suspect]
     Indication: ASTHMA
     Dosage: Q2W, SUBCUTANEOUS
     Route: 058
  2. METFORMIN HCL [Concomitant]
  3. FUROSEMIDE [Concomitant]
  4. HYDROCHLOROTHIAZIDE [Concomitant]
  5. ZOLOFT [Concomitant]
  6. POTASSIUM CHLORIDE [Concomitant]
  7. IRBESARTAN [Concomitant]
  8. CALCIUM (CALCIUM NOS) [Concomitant]
  9. ZOCOR [Concomitant]
  10. ADAVIR (FLUTICASONE PROPIONATE, SALMETEROL XINAFOATE) [Concomitant]
  11. ALBUTEROL INHALER (ALBUTEROL/ALBUTEROL SULFATE) [Concomitant]

REACTIONS (2)
  - INSOMNIA [None]
  - PNEUMONIA [None]
